FAERS Safety Report 25603117 (Version 1)
Quarter: 2025Q3

REPORT INFORMATION
  Report Type: Report from Study
  Country: KR (occurrence: KR)
  Receive Date: 20250724
  Receipt Date: 20250724
  Transmission Date: 20251020
  Serious: Yes (Death, Hospitalization, Other)
  Sender: SUNOVION
  Company Number: KR-ZBN-001-PMS-S31009-01

PATIENT

DRUGS (17)
  1. ESLICARBAZEPINE ACETATE [Suspect]
     Active Substance: ESLICARBAZEPINE ACETATE
     Indication: Epilepsy
     Route: 048
     Dates: start: 20221219, end: 20230102
  2. ESLICARBAZEPINE ACETATE [Suspect]
     Active Substance: ESLICARBAZEPINE ACETATE
     Route: 048
     Dates: start: 20230103, end: 20230129
  3. ESLICARBAZEPINE ACETATE [Suspect]
     Active Substance: ESLICARBAZEPINE ACETATE
     Route: 048
     Dates: start: 20230130, end: 20230209
  4. LAMICTAL [Concomitant]
     Active Substance: LAMOTRIGINE
     Indication: Epilepsy
     Route: 048
     Dates: start: 20210218, end: 20230209
  5. DEPAKOTE ER [Concomitant]
     Active Substance: DIVALPROEX SODIUM
     Indication: Epilepsy
     Route: 048
     Dates: start: 20210218, end: 20221231
  6. DEPAKOTE ER [Concomitant]
     Active Substance: DIVALPROEX SODIUM
     Indication: Epilepsy
     Route: 048
     Dates: start: 20221123, end: 20221231
  7. Myungin phenytoin [Concomitant]
     Indication: Epilepsy
     Route: 048
     Dates: start: 20210218, end: 20230209
  8. URSODIOL [Concomitant]
     Active Substance: URSODIOL
     Indication: Prophylaxis
     Route: 048
     Dates: start: 20210415, end: 20230209
  9. ACETYLCYSTEINE [Concomitant]
     Active Substance: ACETYLCYSTEINE
     Indication: Productive cough
     Route: 048
     Dates: start: 20220426, end: 20230209
  10. Ganakhan [Concomitant]
     Indication: Gastrointestinal disorder
     Route: 048
     Dates: start: 20221123, end: 20230209
  11. LANSOPRAZOLE [Concomitant]
     Active Substance: LANSOPRAZOLE
     Indication: Prophylaxis against gastrointestinal ulcer
     Route: 048
     Dates: start: 20210218, end: 20230209
  12. Thrupass ODT [Concomitant]
     Indication: Urinary tract disorder
     Route: 048
     Dates: start: 20220311, end: 20230209
  13. MEROPENEM [Concomitant]
     Active Substance: MEROPENEM
     Indication: Decubitus ulcer
     Dosage: 1VIAL/ 3X / DAY
     Route: 040
     Dates: start: 20230130, end: 20230209
  14. Colis [Concomitant]
     Indication: Decubitus ulcer
     Dosage: 1VIAL/1X / DAY
     Route: 040
     Dates: start: 20230126, end: 20230130
  15. Folic acid Sinil [Concomitant]
     Indication: Anaemia prophylaxis
     Route: 048
     Dates: start: 20210218, end: 20230209
  16. DIAZEPAM [Concomitant]
     Active Substance: DIAZEPAM
     Indication: Adjuvant therapy
     Route: 048
     Dates: start: 20210218, end: 20230209
  17. Phenobarbital Hana [Concomitant]
     Indication: Epilepsy
     Route: 048
     Dates: start: 20200218, end: 20230209

REACTIONS (3)
  - Sepsis [Fatal]
  - Drug ineffective [Not Recovered/Not Resolved]
  - Asthenia [Not Recovered/Not Resolved]

NARRATIVE: CASE EVENT DATE: 20230209
